FAERS Safety Report 12143661 (Version 1)
Quarter: 2016Q1

REPORT INFORMATION
  Report Type: Spontaneous
  Country: US (occurrence: US)
  Receive Date: 20160304
  Receipt Date: 20160304
  Transmission Date: 20160526
  Serious: No
  Sender: FDA-Public Use
  Company Number: US-JNJFOC-20160123033

PATIENT
  Sex: Male

DRUGS (2)
  1. ZYRTEC [Suspect]
     Active Substance: CETIRIZINE HYDROCHLORIDE
     Indication: SINUS CONGESTION
     Route: 048
  2. ZYRTEC [Suspect]
     Active Substance: CETIRIZINE HYDROCHLORIDE
     Indication: LACRIMATION INCREASED
     Route: 048

REACTIONS (3)
  - Off label use [Unknown]
  - Expired product administered [Unknown]
  - Product use issue [Unknown]
